FAERS Safety Report 7683912-5 (Version None)
Quarter: 2011Q3

REPORT INFORMATION
  Report Type: 
  Country: None (occurrence: None)
  Receive Date: 20110815
  Receipt Date: 20110812
  Transmission Date: 20111222
  Serious: Yes (Hospitalization, Other)
  Sender: FDA-Public Use
  Company Number: US-PFIZER INC-2011159015

PATIENT
  Sex: Female
  Weight: 18.594 kg

DRUGS (8)
  1. CHANTIX [Suspect]
     Indication: SMOKING CESSATION THERAPY
     Dosage: 0.5 MG, 1X/DAY
     Route: 048
  2. DILAUDID [Concomitant]
     Dosage: UNK
  3. CHANTIX [Suspect]
     Dosage: UNK
     Route: 048
  4. MORPHINE [Suspect]
     Indication: PAIN
     Dosage: UNK
  5. DILAUDID [Concomitant]
     Indication: PAIN
     Dosage: 8 MG, EVERY 4 HOURS
  6. CHANTIX [Suspect]
     Dosage: UNK
     Route: 048
  7. CHANTIX [Suspect]
     Dosage: 0.5 MG, 2X/DAY
     Route: 048
  8. VALIUM [Concomitant]
     Dosage: UNK

REACTIONS (7)
  - BLOOD MAGNESIUM DECREASED [None]
  - RESPIRATORY FAILURE [None]
  - HYPOTHYROIDISM [None]
  - MANIA [None]
  - VITAMIN D DECREASED [None]
  - WHEEZING [None]
  - OXYGEN SATURATION DECREASED [None]
